FAERS Safety Report 14128433 (Version 1)
Quarter: 2017Q4

REPORT INFORMATION
  Report Type: Report from Study
  Country: US (occurrence: US)
  Receive Date: 20171026
  Receipt Date: 20171026
  Transmission Date: 20180321
  Serious: Yes (Death, Hospitalization)
  Sender: FDA-Public Use
  Company Number: US-BAYER-2017-199558

PATIENT
  Age: 45 Year
  Sex: Male

DRUGS (1)
  1. STIVARGA [Suspect]
     Active Substance: REGORAFENIB
     Indication: COLON CANCER
     Dosage: 160MG DAILY FOR 21 DAYS
     Route: 048
     Dates: start: 20170719

REACTIONS (5)
  - Dehydration [None]
  - Loss of consciousness [None]
  - Renal disorder [None]
  - Pyrexia [None]
  - Death [Fatal]

NARRATIVE: CASE EVENT DATE: 20170916
